FAERS Safety Report 14448274 (Version 1)
Quarter: 2018Q1

REPORT INFORMATION
  Report Type: Spontaneous
  Country: US (occurrence: US)
  Receive Date: 20180126
  Receipt Date: 20180126
  Transmission Date: 20180509
  Serious: No
  Sender: FDA-Public Use
  Company Number: None

PATIENT
  Age: 38 Year
  Sex: Female

DRUGS (1)
  1. REBIF REBIDOSE [Suspect]
     Active Substance: INTERFERON BETA-1A

REACTIONS (5)
  - Injection site reaction [None]
  - Pain in extremity [None]
  - Injection site pain [None]
  - Abdominal pain [None]
  - Injection site swelling [None]

NARRATIVE: CASE EVENT DATE: 20180125
